FAERS Safety Report 7356584-7 (Version None)
Quarter: 2011Q1

REPORT INFORMATION
  Report Type: 
  Country: None (occurrence: None)
  Receive Date: 20110316
  Receipt Date: 20110302
  Transmission Date: 20110831
  Serious: Yes (Hospitalization)
  Sender: FDA-Public Use
  Company Number: GXKR2011DK01104

PATIENT
  Sex: Male

DRUGS (2)
  1. OXALIPLATIN [Suspect]
     Indication: ADJUVANT THERAPY
     Dates: start: 20110103, end: 20110117
  2. XELODA [Suspect]
     Indication: ADJUVANT THERAPY
     Dates: start: 20110103, end: 20110117

REACTIONS (1)
  - VENA CAVA THROMBOSIS [None]
